FAERS Safety Report 21828338 (Version 1)
Quarter: 2023Q1

REPORT INFORMATION
  Report Type: Spontaneous
  Country: FR (occurrence: FR)
  Receive Date: 20230106
  Receipt Date: 20230106
  Transmission Date: 20230418
  Serious: Yes (Hospitalization)
  Sender: FDA-Public Use
  Company Number: None

PATIENT
  Age: 48 Year
  Sex: Male

DRUGS (4)
  1. VINCRISTINE SULFATE [Suspect]
     Active Substance: VINCRISTINE SULFATE
     Indication: T-cell lymphoma
     Dosage: 2MG, DURATION 21 DAYS
     Route: 065
     Dates: start: 20221028, end: 20221118
  2. DAUNORUBICIN [Suspect]
     Active Substance: DAUNORUBICIN
     Indication: T-cell lymphoma
     Dosage: 50 MG/M2, DURATION 2 DAYS
     Route: 065
     Dates: start: 20221028, end: 20221030
  3. ONCASPAR [Suspect]
     Active Substance: PEGASPARGASE
     Indication: T-cell lymphoma
     Dosage: 1000 MG/M2, DURATION 16 DAYS, STRENGTH: 750UI/ML
     Route: 065
     Dates: start: 20221107, end: 20221123
  4. CYCLOPHOSPHAMIDE [Suspect]
     Active Substance: CYCLOPHOSPHAMIDE
     Indication: T-cell lymphoma
     Dosage: 750 MG, DURATION 7 DAYS
     Route: 065
     Dates: start: 20221028, end: 20221104

REACTIONS (1)
  - Pancreatitis acute [Recovering/Resolving]

NARRATIVE: CASE EVENT DATE: 20221123
